FAERS Safety Report 13710889 (Version 1)
Quarter: 2017Q3

REPORT INFORMATION
  Report Type: Spontaneous
  Country: US (occurrence: US)
  Receive Date: 20170701
  Receipt Date: 20170701
  Transmission Date: 20171127
  Serious: No
  Sender: FDA-Public Use
  Company Number: None

PATIENT
  Age: 77 Year
  Sex: Male
  Weight: 91.1 kg

DRUGS (3)
  1. COUMADIN [Concomitant]
     Active Substance: WARFARIN SODIUM
  2. LEUPROLIDE ACETATE. [Suspect]
     Active Substance: LEUPROLIDE ACETATE
     Dates: end: 20140623
  3. CASODEX [Suspect]
     Active Substance: BICALUTAMIDE
     Dates: end: 20141230

REACTIONS (3)
  - Inflammation [None]
  - Constipation [None]
  - Rectal haemorrhage [None]

NARRATIVE: CASE EVENT DATE: 20170214
